FAERS Safety Report 7592019-7 (Version None)
Quarter: 2011Q2

REPORT INFORMATION
  Report Type: 
  Country: None (occurrence: None)
  Receive Date: 20110628
  Receipt Date: 20110622
  Transmission Date: 20111010
  Serious: Yes (Other)
  Sender: FDA-Public Use
  Company Number: 2011SP027555

PATIENT

DRUGS (3)
  1. REBETOL [Suspect]
     Indication: HEPATITIS C
     Dosage: PO
     Route: 048
  2. PEG-INTRON [Suspect]
     Indication: HEPATITIS C
     Dosage: SC
     Route: 058
  3. INTRON A [Suspect]
     Indication: HEPATITIS C
     Dosage: 6 MIU; IM
     Route: 030

REACTIONS (5)
  - DELIRIUM [None]
  - RETINOPATHY [None]
  - THROMBOCYTOPENIA [None]
  - DEPRESSION [None]
  - FATIGUE [None]
